FAERS Safety Report 14094356 (Version 1)
Quarter: 2017Q4

REPORT INFORMATION
  Report Type: Spontaneous
  Country: US (occurrence: US)
  Receive Date: 20171016
  Receipt Date: 20171016
  Transmission Date: 20180321
  Serious: No
  Sender: FDA-Public Use
  Company Number: US-AMGEN-USASP2017033749

PATIENT
  Age: 71 Year
  Sex: Female

DRUGS (1)
  1. PROLIA [Suspect]
     Active Substance: DENOSUMAB
     Indication: OSTEOPOROSIS
     Dosage: 60 MG, Q6MO
     Route: 065
     Dates: start: 2015

REACTIONS (11)
  - Cheilitis [Unknown]
  - Tongue disorder [Unknown]
  - Tooth disorder [Unknown]
  - Lip pain [Recovering/Resolving]
  - Glossodynia [Recovering/Resolving]
  - Discomfort [Unknown]
  - Paraesthesia oral [Recovering/Resolving]
  - Tongue discomfort [Unknown]
  - Oral discomfort [Recovering/Resolving]
  - Glossitis [Unknown]
  - Lip disorder [Recovering/Resolving]
